FAERS Safety Report 14020252 (Version 1)
Quarter: 2017Q3

REPORT INFORMATION
  Report Type: Report from Study
  Country: CA (occurrence: CA)
  Receive Date: 20170928
  Receipt Date: 20170928
  Transmission Date: 20171128
  Serious: Yes (Other)
  Sender: FDA-Public Use
  Company Number: CA-BRISTOL-MYERS SQUIBB COMPANY-BMS-2017-084491

PATIENT
  Sex: Female

DRUGS (1)
  1. ABATACEPT [Suspect]
     Active Substance: ABATACEPT
     Indication: RHEUMATOID ARTHRITIS
     Dosage: 125 MG, QWK
     Route: 058
     Dates: start: 20170117

REACTIONS (6)
  - Diabetes mellitus inadequate control [Unknown]
  - Arthralgia [Unknown]
  - Pain in extremity [Unknown]
  - Haemorrhage [Unknown]
  - Anaemia [Unknown]
  - Fatigue [Unknown]
